FAERS Safety Report 12629097 (Version 1)
Quarter: 2016Q3

REPORT INFORMATION
  Report Type: Report from Study
  Country: US (occurrence: US)
  Receive Date: 20160808
  Receipt Date: 20160808
  Transmission Date: 20161109
  Serious: No
  Sender: FDA-Public Use
  Company Number: US-AMGEN-USASL2016100479

PATIENT
  Age: 53 Year
  Sex: Female

DRUGS (1)
  1. ENBREL [Suspect]
     Active Substance: ETANERCEPT
     Indication: PRODUCT USED FOR UNKNOWN INDICATION
     Dosage: UNK UNK, UNK
     Route: 065

REACTIONS (7)
  - Pain [Unknown]
  - Upper-airway cough syndrome [Unknown]
  - Ear pruritus [Unknown]
  - Malaise [Unknown]
  - Throat irritation [Unknown]
  - Oropharyngeal pain [Unknown]
  - Headache [Unknown]
